FAERS Safety Report 9547841 (Version 1)
Quarter: 2013Q3

REPORT INFORMATION
  Report Type: Spontaneous
  Country: US (occurrence: US)
  Receive Date: 20130924
  Receipt Date: 20130924
  Transmission Date: 20140515
  Serious: No
  Sender: FDA-Public Use
  Company Number: US-PURDUE-USA-2011-0077028

PATIENT
  Age: 52 Year
  Sex: Male

DRUGS (3)
  1. MS CONTIN TABLETS [Suspect]
     Indication: NEURALGIA
     Dosage: 90 MG, TID
  2. LIDOCAINE [Concomitant]
     Indication: WOUND
     Dosage: UNK
  3. DEPAKOTE [Concomitant]
     Indication: BIPOLAR DISORDER
     Dosage: 1500 MG, DAILY

REACTIONS (1)
  - Drug ineffective [Unknown]
